FAERS Safety Report 13182219 (Version 1)
Quarter: 2017Q1

REPORT INFORMATION
  Report Type: Spontaneous
  Country: JP (occurrence: JP)
  Receive Date: 20170203
  Receipt Date: 20170203
  Transmission Date: 20170428
  Serious: Yes (Other)
  Sender: FDA-Public Use
  Company Number: JP-GLAXOSMITHKLINE-JP2015JPN052942

PATIENT
  Sex: Female

DRUGS (21)
  1. LAMICTAL [Suspect]
     Active Substance: LAMOTRIGINE
     Indication: INFANTILE SPASMS
     Dosage: UNK
     Route: 048
  2. TOPIRAMATE. [Suspect]
     Active Substance: TOPIRAMATE
     Dosage: UNK
     Route: 048
  3. CLOBAZAM [Concomitant]
     Active Substance: CLOBAZAM
     Dosage: 0.3 MG/KG, 1D
  4. CLOBAZAM [Concomitant]
     Active Substance: CLOBAZAM
     Dosage: 0.2 MG/KG, 1D
  5. ETHOTOIN [Concomitant]
     Active Substance: ETHOTOIN
     Dosage: 6.7 MG/KG, 1D
  6. LAMICTAL [Suspect]
     Active Substance: LAMOTRIGINE
     Dosage: 3 MG/KG, 1D
     Route: 048
  7. VALPROATE SODIUM. [Suspect]
     Active Substance: VALPROATE SODIUM
     Dosage: 16 MG/KG, 1D
     Route: 048
  8. CARBAMAZEPINE. [Suspect]
     Active Substance: CARBAMAZEPINE
     Dosage: UNK
     Route: 048
  9. CLOBAZAM [Concomitant]
     Active Substance: CLOBAZAM
     Dosage: 0.26 MG/KG, 1D
  10. PHENOBARBITAL. [Concomitant]
     Active Substance: PHENOBARBITAL
     Dosage: UNK
  11. VALPROATE SODIUM. [Suspect]
     Active Substance: VALPROATE SODIUM
     Dosage: 30 MG/KG, 1D
     Route: 048
  12. VALPROATE SODIUM. [Suspect]
     Active Substance: VALPROATE SODIUM
     Dosage: 20 MG/KG, 1D
     Route: 048
  13. ZONISAMIDE. [Concomitant]
     Active Substance: ZONISAMIDE
     Dosage: 6 MG/KG, 1D
  14. LAMICTAL [Suspect]
     Active Substance: LAMOTRIGINE
     Dosage: 2.7 MG/KG, 1D
     Route: 048
  15. LAMICTAL [Suspect]
     Active Substance: LAMOTRIGINE
     Dosage: 2 MG/KG, 1D
     Route: 048
  16. CLOBAZAM [Concomitant]
     Active Substance: CLOBAZAM
     Dosage: 0.13 MG/KG, 1D
  17. VALPROATE SODIUM. [Suspect]
     Active Substance: VALPROATE SODIUM
     Dosage: 20 MG/KG, 1D
     Route: 048
  18. ZONISAMIDE. [Concomitant]
     Active Substance: ZONISAMIDE
     Dosage: UNK
  19. CARNITINE CHLORIDE [Concomitant]
     Dosage: UNK
  20. LAMICTAL [Suspect]
     Active Substance: LAMOTRIGINE
     Dosage: 4 MG/KG, 1D
     Route: 048
  21. VALPROATE SODIUM. [Suspect]
     Active Substance: VALPROATE SODIUM
     Dosage: UNK UNK, 1D
     Route: 048

REACTIONS (23)
  - Joint hyperextension [Unknown]
  - Wheezing [Unknown]
  - Epileptic encephalopathy [Unknown]
  - Generalised tonic-clonic seizure [Unknown]
  - Muscle spasms [Unknown]
  - Reduced facial expression [Recovering/Resolving]
  - Eye movement disorder [Unknown]
  - Epilepsy [Unknown]
  - Staring [Unknown]
  - Intellectual disability [Unknown]
  - Conjunctival hyperaemia [Unknown]
  - Motor developmental delay [Recovering/Resolving]
  - Gaze palsy [Unknown]
  - Myoclonus [Unknown]
  - Hyporeflexia [Unknown]
  - Glossoptosis [Unknown]
  - Somnolence [Recovering/Resolving]
  - Aspiration [Unknown]
  - Asterixis [Recovering/Resolving]
  - Confusional state [Unknown]
  - Hypotonia [Recovering/Resolving]
  - Dysphagia [Recovering/Resolving]
  - Salivary hypersecretion [Unknown]
